FAERS Safety Report 7677890-2 (Version None)
Quarter: 2011Q3

REPORT INFORMATION
  Report Type: 
  Country: None (occurrence: None)
  Receive Date: 20110811
  Receipt Date: 20110802
  Transmission Date: 20111222
  Serious: Yes (Life-Threatening, Hospitalization)
  Sender: FDA-Public Use
  Company Number: US-MERCK-1012USA01781

PATIENT
  Age: 78 Year
  Sex: Male

DRUGS (6)
  1. JANUVIA [Suspect]
     Indication: DIABETES MELLITUS
     Route: 048
     Dates: start: 20090501, end: 20100921
  2. LYRICA [Concomitant]
     Route: 065
  3. FEXOFENADINE HYDROCHLORIDE [Concomitant]
     Route: 065
  4. VERAPAMIL [Concomitant]
     Route: 065
  5. HYDRALAZINE [Concomitant]
     Route: 065
  6. LIPITOR [Concomitant]
     Route: 065

REACTIONS (12)
  - RENAL FAILURE ACUTE [None]
  - RESPIRATORY FAILURE [None]
  - CARDIAC ARREST [None]
  - ADVERSE EVENT [None]
  - PANCREATIC INJURY [None]
  - LOSS OF CONSCIOUSNESS [None]
  - CARDIOGENIC SHOCK [None]
  - BRADYCARDIA [None]
  - PANCREATITIS [None]
  - ABDOMINAL TENDERNESS [None]
  - BLOOD GLUCOSE INCREASED [None]
  - DRUG HYPERSENSITIVITY [None]
